FAERS Safety Report 17225503 (Version 1)
Quarter: 2020Q1

REPORT INFORMATION
  Report Type: Spontaneous
  Country: PT (occurrence: PT)
  Receive Date: 20200102
  Receipt Date: 20200102
  Transmission Date: 20200409
  Serious: Yes (Other)
  Sender: FDA-Public Use
  Company Number: PT-MYLANLABS-2019M1132267

PATIENT
  Age: 57 Year
  Sex: Male

DRUGS (2)
  1. LEVOFLOXACIN. [Suspect]
     Active Substance: LEVOFLOXACIN
     Dosage: , 750 MG 1 DOSE E DEPOIS 500 MG DE 2/2 DIAS.250 MILLIGRAM
     Route: 048
     Dates: start: 20190902
  2. LEVOFLOXACIN. [Suspect]
     Active Substance: LEVOFLOXACIN
     Indication: TRACHEOBRONCHITIS
     Dosage: 750 MG 1 DOSE E DEPOIS 500 MG DE 2/2 DIAS
     Route: 048
     Dates: start: 20190902

REACTIONS (1)
  - Myoclonus [Recovered/Resolved]

NARRATIVE: CASE EVENT DATE: 20190902
